FAERS Safety Report 6822476-2 (Version None)
Quarter: 2010Q3

REPORT INFORMATION
  Report Type: 
  Country: None (occurrence: None)
  Receive Date: 20100706
  Receipt Date: 20100706
  Transmission Date: 20110219
  Serious: Yes (Life-Threatening, Hospitalization, Disabling)
  Sender: FDA-Public Use
  Company Number: None

PATIENT
  Sex: Female
  Weight: 88.4514 kg

DRUGS (2)
  1. YAZ [Suspect]
     Indication: CONTRACEPTION
     Dosage: ONE PILL DAILY PO
     Route: 048
     Dates: start: 20100120, end: 20100330
  2. YAZ [Suspect]
     Indication: HORMONE LEVEL ABNORMAL
     Dosage: ONE PILL DAILY PO
     Route: 048
     Dates: start: 20100120, end: 20100330

REACTIONS (1)
  - PULMONARY THROMBOSIS [None]
